FAERS Safety Report 7287104-3 (Version None)
Quarter: 2011Q1

REPORT INFORMATION
  Report Type: 
  Country: None (occurrence: None)
  Receive Date: 20110211
  Receipt Date: 20110131
  Transmission Date: 20110831
  Serious: Yes (Other)
  Sender: FDA-Public Use
  Company Number: BR-ROCHE-756768

PATIENT
  Sex: Female
  Weight: 48 kg

DRUGS (1)
  1. ROACUTAN [Suspect]
     Route: 048
     Dates: start: 20101010, end: 20101102

REACTIONS (7)
  - PANIC ATTACK [None]
  - ILL-DEFINED DISORDER [None]
  - DIZZINESS [None]
  - ASTHENIA [None]
  - DRY MOUTH [None]
  - ANXIETY [None]
  - CONFUSIONAL STATE [None]
